FAERS Safety Report 8486115-X (Version None)
Quarter: 2012Q3

REPORT INFORMATION
  Report Type: 
  Country: None (occurrence: None)
  Receive Date: 20120703
  Receipt Date: 20120625
  Transmission Date: 20120928
  Serious: Yes (Hospitalization)
  Sender: FDA-Public Use
  Company Number: US-US-EMD SERONO, INC.-7143631

PATIENT
  Sex: Female

DRUGS (5)
  1. BUPROPION HCL [Concomitant]
     Indication: DEPRESSION
  2. FOLBIC [Concomitant]
     Indication: ANAEMIA
  3. FERROUS SULFATE TAB [Concomitant]
     Indication: ANAEMIA
  4. REBIF [Suspect]
     Indication: RELAPSING-REMITTING MULTIPLE SCLEROSIS
     Route: 058
     Dates: start: 20120426
  5. LISINOPRIL [Concomitant]
     Indication: HYPERTENSION

REACTIONS (2)
  - GROIN ABSCESS [None]
  - INJECTION SITE HAEMATOMA [None]
